FAERS Safety Report 15786258 (Version 1)
Quarter: 2018Q4

REPORT INFORMATION
  Report Type: Spontaneous
  Country: US (occurrence: US)
  Receive Date: 20181212
  Receipt Date: 20181212
  Transmission Date: 20190205
  Serious: Yes (Hospitalization)
  Sender: FDA-Public Use
  Company Number: None

PATIENT
  Age: 56 Year
  Sex: Male
  Weight: 131.5 kg

DRUGS (3)
  1. LEUPROLIDE ACETATE. [Suspect]
     Active Substance: LEUPROLIDE ACETATE
     Dates: end: 20181012
  2. TAXOTERE [Suspect]
     Active Substance: DOCETAXEL
     Dates: end: 20181101
  3. CASODEX [Suspect]
     Active Substance: BICALUTAMIDE
     Dates: end: 20181124

REACTIONS (1)
  - Loss of consciousness [None]

NARRATIVE: CASE EVENT DATE: 20181124
